FAERS Safety Report 16320055 (Version 1)
Quarter: 2019Q2

REPORT INFORMATION
  Report Type: Spontaneous
  Country: US (occurrence: US)
  Receive Date: 20190410
  Receipt Date: 20190410
  Transmission Date: 20190711
  Serious: Yes (Hospitalization)
  Sender: FDA-Public Use
  Company Number: None

PATIENT
  Age: 59 Year
  Sex: Female

DRUGS (3)
  1. AMITRIPTYLIN [Concomitant]
     Active Substance: AMITRIPTYLINE
  2. AMITIZA [Concomitant]
     Active Substance: LUBIPROSTONE
  3. DALFAMPRIDINE ER TAB [Suspect]
     Active Substance: DALFAMPRIDINE
     Dosage: ?          OTHER FREQUENCY:EVERY 12 HRS;?
     Route: 048
     Dates: start: 20181030

REACTIONS (6)
  - Fall [None]
  - Head injury [None]
  - Depression [None]
  - Cerebral haemorrhage [None]
  - Cerebrovascular accident [None]
  - Fatigue [None]
